FAERS Safety Report 14693580 (Version 1)
Quarter: 2018Q1

REPORT INFORMATION
  Report Type: Spontaneous
  Country: US (occurrence: US)
  Receive Date: 20180329
  Receipt Date: 20180329
  Transmission Date: 20180509
  Serious: Yes (Other)
  Sender: FDA-Public Use
  Company Number: US-GLAXOSMITHKLINE-US2018052245

PATIENT
  Sex: Female

DRUGS (1)
  1. LAMICTAL [Suspect]
     Active Substance: LAMOTRIGINE
     Indication: SEIZURE
     Dosage: UNK
     Dates: start: 2007

REACTIONS (5)
  - Toxicity to various agents [Unknown]
  - Drug level increased [Unknown]
  - Loss of consciousness [Unknown]
  - Inappropriate schedule of drug administration [Unknown]
  - Herpes zoster [Unknown]
